FAERS Safety Report 10469331 (Version 2)
Quarter: 2014Q4

REPORT INFORMATION
  Report Type: Spontaneous
  Country: GR (occurrence: GR)
  Receive Date: 20140923
  Receipt Date: 20141007
  Transmission Date: 20150528
  Serious: No
  Sender: FDA-Public Use
  Company Number: PHHY2014GR117024

PATIENT
  Age: 47 Year
  Sex: Male

DRUGS (1)
  1. EXJADE [Suspect]
     Active Substance: DEFERASIROX
     Indication: THALASSAEMIA
     Dosage: UNK UKN, UNK

REACTIONS (2)
  - Thrombocytopenia [Recovering/Resolving]
  - Leukopenia [Recovering/Resolving]
